FAERS Safety Report 5051331-6 (Version None)
Quarter: 2006Q3

REPORT INFORMATION
  Report Type: 
  Country: None (occurrence: None)
  Receive Date: 20060710
  Receipt Date: 20060629
  Transmission Date: 20061208
  Serious: Yes (Other)
  Sender: FDA-Public Use
  Company Number: 2006-06-1806

PATIENT
  Age: 51 Year
  Sex: Male
  Weight: 95.709 kg

DRUGS (12)
  1. PEG-INTRON [Suspect]
     Indication: HEPATITIS C
     Dosage: SUBCUTANEOUS
     Route: 058
     Dates: start: 20060331
  2. RIBAVIRIN [Suspect]
     Indication: HEPATITIS C
     Dosage: ORAL
     Route: 048
     Dates: start: 20060331
  3. CYMBALTA [Concomitant]
  4. GLIPIZIDE [Concomitant]
  5. GLUCOPHAGE [Concomitant]
  6. IBUPROFEN TABLETS [Concomitant]
  7. IMODIUM [Concomitant]
  8. NEURONTIN [Concomitant]
  9. PRINIVIL TABLETS [Concomitant]
  10. PROTONIX (PANTOPRAZOLE SODIUM) TABLETS [Concomitant]
  11. VISTARIL CAP [Concomitant]
  12. ZOLOFT [Concomitant]

REACTIONS (13)
  - APPLICATION SITE PRURITUS [None]
  - BLOOD GLUCOSE INCREASED [None]
  - DEHYDRATION [None]
  - DEPRESSION [None]
  - DIARRHOEA [None]
  - DIZZINESS [None]
  - DRY SKIN [None]
  - FATIGUE [None]
  - HAEMOGLOBIN DECREASED [None]
  - NAUSEA [None]
  - RASH [None]
  - SKIN LESION [None]
  - WEIGHT DECREASED [None]
